FAERS Safety Report 5907546-5 (Version None)
Quarter: 2008Q4

REPORT INFORMATION
  Report Type: 
  Country: None (occurrence: None)
  Receive Date: 20081003
  Receipt Date: 20080923
  Transmission Date: 20090506
  Serious: Yes (Other)
  Sender: FDA-Public Use
  Company Number: US-ABBOTT-08P-163-0477883-00

PATIENT
  Sex: Female
  Weight: 58.112 kg

DRUGS (5)
  1. HUMIRA [Suspect]
     Indication: CROHN'S DISEASE
     Route: 050
     Dates: start: 20080701, end: 20080922
  2. HUMIRA [Suspect]
     Route: 050
     Dates: start: 20080922
  3. IRON [Concomitant]
     Indication: ANAEMIA
     Route: 048
  4. PREDNISONE [Concomitant]
     Indication: INFLAMMATION
     Route: 048
  5. PREDNISONE [Concomitant]

REACTIONS (6)
  - ACCIDENTAL EXPOSURE [None]
  - ANAEMIA [None]
  - DIZZINESS [None]
  - DRUG INEFFECTIVE [None]
  - HAEMORRHAGE [None]
  - PYREXIA [None]
